FAERS Safety Report 7920854-1 (Version None)
Quarter: 2011Q4

REPORT INFORMATION
  Report Type: 
  Country: None (occurrence: None)
  Receive Date: 20111117
  Receipt Date: 20110824
  Transmission Date: 20120403
  Serious: Yes (Other)
  Sender: FDA-Public Use
  Company Number: US-GLAXOSMITHKLINE-A0942162A

PATIENT
  Sex: Female

DRUGS (2)
  1. SYNTHROID [Concomitant]
  2. VOTRIENT [Suspect]
     Indication: SARCOMA
     Route: 048

REACTIONS (1)
  - HYPOTHYROIDISM [None]
